FAERS Safety Report 16661479 (Version 2)
Quarter: 2019Q3

REPORT INFORMATION
  Report Type: Spontaneous
  Country: US (occurrence: US)
  Receive Date: 20190802
  Receipt Date: 20190909
  Transmission Date: 20191004
  Serious: Yes (Other)
  Sender: FDA-Public Use
  Company Number: US-PFIZER INC-2019328992

PATIENT
  Age: 63 Year
  Sex: Male
  Weight: 99.79 kg

DRUGS (2)
  1. ADVIL PM [Suspect]
     Active Substance: DIPHENHYDRAMINE CITRATE\IBUPROFEN
     Indication: LIMB INJURY
     Dosage: 1 DF, UNK
  2. CENTRUM SILVER [ASCORBIC ACID;CALCIUM;MINERALS NOS;RETINOL;TOCOPHERYL [Concomitant]
     Dosage: UNK, 1X/DAY
     Dates: start: 2017

REACTIONS (13)
  - Paraesthesia [Recovered/Resolved]
  - Pharyngeal swelling [Recovered/Resolved]
  - Loss of consciousness [Recovered/Resolved]
  - Dysphagia [Recovered/Resolved]
  - Dyspnoea [Recovered/Resolved]
  - Dizziness [Not Recovered/Not Resolved]
  - Urticaria [Recovered/Resolved]
  - Drug hypersensitivity [Unknown]
  - Asthenia [Recovering/Resolving]
  - Malaise [Recovering/Resolving]
  - Pruritus [Not Recovered/Not Resolved]
  - Speech disorder [Recovered/Resolved]
  - Headache [Not Recovered/Not Resolved]
